FAERS Safety Report 8759777 (Version 1)
Quarter: 2012Q4

REPORT INFORMATION
  Report Type: 
  Country: US (occurrence: US)
  Receive Date: 20120829
  Receipt Date: 20120829
  Transmission Date: 20130627
  Serious: No
  Sender: FDA-Public Use
  Company Number: US-009507513-1208USA011496

PATIENT

DRUGS (1)
  1. COPPERTONE KIDS SPF 70 PLUS [Suspect]
     Indication: PRODUCT USED FOR UNKNOWN INDICATION
     Dosage: UNK, Unknown
     Route: 061

REACTIONS (2)
  - Erythema of eyelid [Unknown]
  - Eyelid exfoliation [Unknown]
